FAERS Safety Report 4359799-5 (Version None)
Quarter: 2004Q2

REPORT INFORMATION
  Report Type: 
  Country: None (occurrence: None)
  Receive Date: 20040518
  Receipt Date: 20040504
  Transmission Date: 20050107
  Serious: Yes (Life-Threatening, Hospitalization)
  Sender: FDA-Public Use
  Company Number: FR-GLAXOSMITHKLINE-B0332167A

PATIENT
  Age: 45 Year
  Sex: Male
  Weight: 70 kg

DRUGS (5)
  1. EPIVIR [Suspect]
     Indication: HIV INFECTION
     Route: 048
     Dates: start: 20020101
  2. ZERIT [Suspect]
     Indication: HIV INFECTION
     Route: 048
     Dates: start: 20020615, end: 20040404
  3. REBETOL [Suspect]
     Indication: HEPATITIS C
     Route: 048
     Dates: start: 20031015, end: 20031201
  4. VIREAD [Suspect]
     Indication: HIV INFECTION
     Route: 048
     Dates: start: 20020615, end: 20040404
  5. ALPHA 2B INTERFERON [Suspect]
     Indication: HEPATITIS C
     Route: 058
     Dates: start: 20031015, end: 20031201

REACTIONS (18)
  - ABDOMINAL PAIN [None]
  - ABNORMAL BEHAVIOUR [None]
  - ACID BASE BALANCE ABNORMAL [None]
  - ASCITES [None]
  - BLOOD LACTATE DEHYDROGENASE INCREASED [None]
  - BLOOD LACTIC ACID INCREASED [None]
  - DEPRESSED LEVEL OF CONSCIOUSNESS [None]
  - GASTROINTESTINAL CANDIDIASIS [None]
  - HEPATIC ENCEPHALOPATHY [None]
  - HEPATIC FAILURE [None]
  - INSULIN RESISTANT DIABETES [None]
  - INSULIN-REQUIRING TYPE II DIABETES MELLITUS [None]
  - LACTIC ACIDOSIS [None]
  - LIPASE INCREASED [None]
  - PORTAL HYPERTENSION [None]
  - VARICES OESOPHAGEAL [None]
  - VOMITING [None]
  - WEIGHT INCREASED [None]
